FAERS Safety Report 19166559 (Version 1)
Quarter: 2021Q2

REPORT INFORMATION
  Report Type: Spontaneous
  Country: US (occurrence: US)
  Receive Date: 20210421
  Receipt Date: 20210421
  Transmission Date: 20210717
  Serious: No
  Sender: FDA-Public Use
  Company Number: None

PATIENT
  Sex: Female

DRUGS (1)
  1. STELARA [Suspect]
     Active Substance: USTEKINUMAB
     Indication: CROHN^S DISEASE
     Dosage: OTHER FREQUENCY:EVERY 8 WEEKS;?
     Route: 058
     Dates: start: 20201201

REACTIONS (5)
  - Condition aggravated [None]
  - Muscle spasms [None]
  - Diarrhoea [None]
  - Abdominal pain upper [None]
  - Haemorrhage [None]
